FAERS Safety Report 24644485 (Version 1)
Quarter: 2024Q4

REPORT INFORMATION
  Report Type: Spontaneous
  Country: CA (occurrence: CA)
  Receive Date: 20241121
  Receipt Date: 20241121
  Transmission Date: 20250115
  Serious: Yes (Other)
  Sender: AMGEN
  Company Number: CA-AMGEN-CANSP2024224643

PATIENT
  Age: 34 Year
  Sex: Female

DRUGS (3)
  1. INFLIXIMAB [Suspect]
     Active Substance: INFLIXIMAB
     Indication: Colitis ulcerative
     Dosage: UNK
     Route: 065
  2. VEDOLIZUMAB [Concomitant]
     Active Substance: VEDOLIZUMAB
     Indication: Colitis ulcerative
     Dosage: 300 MILLIGRAM, AT WEEKS 0, 2 AND 6
  3. VEDOLIZUMAB [Concomitant]
     Active Substance: VEDOLIZUMAB
     Dosage: UNK, MAINTANANCE THERAPY
     Route: 040

REACTIONS (6)
  - Ureterolithiasis [Unknown]
  - Arthralgia [Unknown]
  - Joint swelling [Unknown]
  - C-reactive protein increased [Unknown]
  - Ill-defined disorder [Unknown]
  - Bone disorder [Unknown]
